FAERS Safety Report 15727934 (Version 1)
Quarter: 2018Q4

REPORT INFORMATION
  Report Type: Spontaneous
  Country: ES (occurrence: ES)
  Receive Date: 20181217
  Receipt Date: 20181217
  Transmission Date: 20190205
  Serious: Yes (Death, Hospitalization)
  Sender: FDA-Public Use
  Company Number: ES-ROCHE-2229339

PATIENT
  Age: 40 Year
  Sex: Female

DRUGS (4)
  1. DOCETAXEL. [Suspect]
     Active Substance: DOCETAXEL
     Indication: BREAST CANCER
     Route: 042
     Dates: start: 20180223, end: 20180223
  2. CARBOPLATINO [Suspect]
     Active Substance: CARBOPLATIN
     Indication: BREAST CANCER
     Route: 042
     Dates: start: 20180223, end: 20180223
  3. TRASTUZUMAB. [Suspect]
     Active Substance: TRASTUZUMAB
     Indication: BREAST CANCER
     Route: 042
     Dates: start: 20180223, end: 20180223
  4. FORTECORTIN [Concomitant]
     Active Substance: DEXAMETHASONE
     Dosage: 1 CP DIA
     Route: 048
     Dates: start: 20180224, end: 20180227

REACTIONS (2)
  - Large intestine perforation [Fatal]
  - Colitis [Fatal]

NARRATIVE: CASE EVENT DATE: 20180302
